FAERS Safety Report 16225200 (Version 1)
Quarter: 2019Q2

REPORT INFORMATION
  Report Type: Report from Study
  Country: JP (occurrence: JP)
  Receive Date: 20190422
  Receipt Date: 20190422
  Transmission Date: 20190711
  Serious: Yes (Other)
  Sender: FDA-Public Use
  Company Number: JP-MYLANLABS-2019M1037749

PATIENT
  Age: 52 Year
  Sex: Female

DRUGS (13)
  1. EVEROLIMUS. [Interacting]
     Active Substance: EVEROLIMUS
     Indication: METASTASES TO CENTRAL NERVOUS SYSTEM
  2. INTERFERON [Concomitant]
     Active Substance: INTERFERON
     Indication: METASTASES TO LUNG
  3. PROBUCOL [Concomitant]
     Active Substance: PROBUCOL
     Indication: PRODUCT USED FOR UNKNOWN INDICATION
     Route: 065
  4. EVEROLIMUS. [Interacting]
     Active Substance: EVEROLIMUS
     Indication: CLEAR CELL RENAL CELL CARCINOMA
     Route: 065
  5. EVEROLIMUS. [Interacting]
     Active Substance: EVEROLIMUS
     Indication: METASTASES TO LUNG
  6. REBAMIPIDE [Concomitant]
     Active Substance: REBAMIPIDE
     Indication: PRODUCT USED FOR UNKNOWN INDICATION
     Route: 065
  7. INTERFERON [Concomitant]
     Active Substance: INTERFERON
     Indication: CLEAR CELL RENAL CELL CARCINOMA
     Route: 065
  8. FERROUS CITRATE [Concomitant]
     Active Substance: FERROUS CITRATE
     Indication: PRODUCT USED FOR UNKNOWN INDICATION
     Route: 065
  9. LANSOPRAZOLE. [Interacting]
     Active Substance: LANSOPRAZOLE
     Indication: PRODUCT USED FOR UNKNOWN INDICATION
     Route: 065
  10. DOMPERIDONE [Concomitant]
     Active Substance: DOMPERIDONE
     Indication: PRODUCT USED FOR UNKNOWN INDICATION
     Route: 065
  11. PREDNISOLONE. [Suspect]
     Active Substance: PREDNISOLONE
     Indication: BRAIN OEDEMA
     Route: 065
  12. PREDNISOLONE. [Interacting]
     Active Substance: PREDNISOLONE
     Dosage: 5 MILLIGRAM, QD
     Route: 065
  13. CARBAMAZEPINE. [Interacting]
     Active Substance: CARBAMAZEPINE
     Indication: NEUROLOGICAL SYMPTOM
     Route: 065

REACTIONS (2)
  - Drug interaction [Recovering/Resolving]
  - Drug level decreased [Recovering/Resolving]
